FAERS Safety Report 9281868 (Version 1)
Quarter: 2013Q2

REPORT INFORMATION
  Report Type: Spontaneous
  Country: US (occurrence: US)
  Receive Date: 20130510
  Receipt Date: 20130510
  Transmission Date: 20140414
  Serious: No
  Sender: FDA-Public Use
  Company Number: US-B.I. PHARMACEUTICALS,INC./RIDGEFIELD-2013-BI-12923BP

PATIENT
  Age: 52 Year
  Sex: Female
  Weight: 88 kg

DRUGS (5)
  1. SPIRIVA [Suspect]
     Indication: ASTHMA
     Dosage: 18 MCG
     Route: 055
     Dates: start: 201207, end: 20130504
  2. IPRATROPIUM BROMIDE NEBULIZER [Concomitant]
     Indication: ASTHMA
     Route: 055
  3. PANTANASE [Concomitant]
     Indication: SINUSITIS
     Dosage: FORMULATION: INHALATION SPRAY
     Route: 045
  4. NASONEX [Concomitant]
     Indication: SINUSITIS
     Dosage: 100 MCG
     Route: 045
  5. XOPENEX HFA [Concomitant]
     Indication: INHALATION THERAPY
     Route: 055

REACTIONS (4)
  - Dyspnoea [Not Recovered/Not Resolved]
  - Cough [Not Recovered/Not Resolved]
  - Sinusitis [Not Recovered/Not Resolved]
  - Wheezing [Not Recovered/Not Resolved]
